FAERS Safety Report 7073657 (Version 2)
Quarter: 2013Q2

REPORT INFORMATION
  Report Type: Report from Study
  Country: AU (occurrence: AU)
  Receive Date: 20090806
  Receipt Date: 20130510
  Transmission Date: 20140414
  Serious: Yes (Hospitalization)
  Sender: FDA-Public Use
  Company Number: AU-BIOGENIDEC-2009BI008239

PATIENT
  Age: 46 Year
  Sex: Female

DRUGS (1)
  1. TYSABRI [Suspect]
     Indication: RELAPSING-REMITTING MULTIPLE SCLEROSIS
     Route: 042
     Dates: start: 20080830, end: 20090214

REACTIONS (3)
  - Malignant neoplasm of ampulla of Vater [Recovered/Resolved]
  - Bile duct stone [Recovered/Resolved]
  - Rectal polyp [Recovered/Resolved]
